FAERS Safety Report 8366906-6 (Version None)
Quarter: 2012Q2

REPORT INFORMATION
  Report Type: 
  Country: None (occurrence: None)
  Receive Date: 20120517
  Receipt Date: 20120502
  Transmission Date: 20120825
  Serious: Yes (Disabling, Other)
  Sender: FDA-Public Use
  Company Number: US-ROCHE-1054966

PATIENT
  Sex: Female
  Weight: 101.7 kg

DRUGS (3)
  1. ZELBORAF [Suspect]
     Dosage: 3
     Route: 048
     Dates: start: 20120227, end: 20120308
  2. ZELBORAF [Suspect]
     Route: 048
     Dates: start: 20120402
  3. ZELBORAF [Suspect]
     Indication: MALIGNANT MELANOMA
     Route: 048

REACTIONS (10)
  - OROPHARYNGEAL PAIN [None]
  - RASH ERYTHEMATOUS [None]
  - MYALGIA [None]
  - NAUSEA [None]
  - ARTHRALGIA [None]
  - PRURITUS [None]
  - PHOTOPHOBIA [None]
  - RASH [None]
  - ALOPECIA [None]
  - DYSPNOEA [None]
